FAERS Safety Report 7782510-2 (Version None)
Quarter: 2011Q3

REPORT INFORMATION
  Report Type: 
  Country: None (occurrence: None)
  Receive Date: 20110927
  Receipt Date: 20110927
  Transmission Date: 20111222
  Serious: Yes (Hospitalization)
  Sender: FDA-Public Use
  Company Number: None

PATIENT
  Age: 55 Year
  Sex: Male
  Weight: 117.2 kg

DRUGS (1)
  1. ASPIRIN [Suspect]
     Indication: DIABETES MELLITUS
     Dosage: 81 MG EVERY DAY PO
     Route: 048
     Dates: start: 20090528, end: 20110808

REACTIONS (11)
  - PLATELET COUNT DECREASED [None]
  - HAEMORRHAGE [None]
  - DIVERTICULUM [None]
  - BLOOD CREATININE INCREASED [None]
  - BLOOD PRESSURE SYSTOLIC DECREASED [None]
  - MELAENA [None]
  - HAEMOGLOBIN DECREASED [None]
  - HAEMATOCRIT DECREASED [None]
  - GASTRIC MUCOSA ERYTHEMA [None]
  - ABDOMINAL DISCOMFORT [None]
  - BLOOD POTASSIUM INCREASED [None]
